FAERS Safety Report 14010010 (Version 1)
Quarter: 2017Q3

REPORT INFORMATION
  Report Type: Spontaneous
  Country: US (occurrence: US)
  Receive Date: 20170925
  Receipt Date: 20170925
  Transmission Date: 20171128
  Serious: Yes (Other)
  Sender: FDA-Public Use
  Company Number: PHEH2017US030589

PATIENT
  Sex: Male

DRUGS (2)
  1. AFINITOR [Suspect]
     Active Substance: EVEROLIMUS
     Indication: CARCINOID SYNDROME
     Route: 048
  2. XERMELO [Suspect]
     Active Substance: TELOTRISTAT ETHYL
     Indication: CARCINOID SYNDROME
     Dosage: 250 MG, TID
     Route: 048

REACTIONS (9)
  - Rash [Recovered/Resolved]
  - Product use in unapproved indication [Unknown]
  - 5-hydroxyindolacetic acid in urine [Unknown]
  - Blood chromogranin A increased [Unknown]
  - Diarrhoea [Unknown]
  - Flushing [Unknown]
  - Weight decreased [Unknown]
  - Mesenteric neoplasm [Unknown]
  - Hepatic lesion [Unknown]
